FAERS Safety Report 9276821 (Version 2)
Quarter: 2013Q3

REPORT INFORMATION
  Report Type: Report from Study
  Country: US (occurrence: US)
  Receive Date: 20130507
  Receipt Date: 20130717
  Transmission Date: 20140515
  Serious: Yes (Other)
  Sender: FDA-Public Use
  Company Number: US-ABBOTT-13P-163-1083253-00

PATIENT
  Sex: Male
  Weight: 93.07 kg

DRUGS (1)
  1. HUMIRA [Suspect]
     Indication: RHEUMATOID ARTHRITIS
     Dates: start: 20100703

REACTIONS (11)
  - Pericarditis [Recovered/Resolved]
  - Pericardial effusion [Recovered/Resolved]
  - Back pain [Recovered/Resolved]
  - Painful respiration [Recovered/Resolved]
  - Herpes zoster [Not Recovered/Not Resolved]
  - Herpes zoster [Not Recovered/Not Resolved]
  - Pain [Not Recovered/Not Resolved]
  - Periodontal disease [Unknown]
  - Rheumatoid arthritis [Unknown]
  - Rheumatoid arthritis [Unknown]
  - Rheumatoid arthritis [Unknown]
